FAERS Safety Report 19244919 (Version 6)
Quarter: 2022Q1

REPORT INFORMATION
  Report Type: Report from Study
  Country: US (occurrence: US)
  Receive Date: 20210511
  Receipt Date: 20220324
  Transmission Date: 20220423
  Serious: Yes (Other)
  Sender: FDA-Public Use
  Company Number: NVSC2021US105763

PATIENT
  Sex: Male

DRUGS (4)
  1. ENTRESTO [Suspect]
     Active Substance: SACUBITRIL\VALSARTAN
     Indication: Product used for unknown indication
     Dosage: UNK
     Route: 065
  2. ENTRESTO [Suspect]
     Active Substance: SACUBITRIL\VALSARTAN
     Dosage: UNK
     Route: 065
  3. MELATONIN [Concomitant]
     Active Substance: MELATONIN
     Indication: Product used for unknown indication
     Dosage: UNK (IN AM)
     Route: 065
  4. FUROSEMIDE [Concomitant]
     Active Substance: FUROSEMIDE
     Indication: Product used for unknown indication
     Dosage: UNK
     Route: 065

REACTIONS (12)
  - Pneumonia [Unknown]
  - Cough [Not Recovered/Not Resolved]
  - Weight increased [Unknown]
  - Respiration abnormal [Unknown]
  - Dehydration [Unknown]
  - Pain in extremity [Unknown]
  - Arthralgia [Unknown]
  - Gout [Unknown]
  - Brain natriuretic peptide increased [Unknown]
  - Hypotension [Unknown]
  - Dizziness [Unknown]
  - Inappropriate schedule of product administration [Unknown]
